FAERS Safety Report 8115869-7 (Version None)
Quarter: 2012Q1

REPORT INFORMATION
  Report Type: 
  Country: None (occurrence: None)
  Receive Date: 20120206
  Receipt Date: 20120127
  Transmission Date: 20120608
  Serious: Yes (Hospitalization)
  Sender: FDA-Public Use
  Company Number: FR-ROCHE-1034784

PATIENT
  Sex: Female

DRUGS (4)
  1. ROCEPHIN [Suspect]
     Indication: INFECTIOUS PERITONITIS
     Route: 042
     Dates: start: 20111125, end: 20111129
  2. PLAVIX [Concomitant]
     Route: 048
  3. ATORVASTATIN [Concomitant]
     Route: 048
  4. AUGMENTIN '125' [Suspect]
     Indication: INFECTIOUS PERITONITIS
     Route: 048
     Dates: start: 20111130, end: 20111205

REACTIONS (1)
  - HEPATITIS [None]
